FAERS Safety Report 11101020 (Version 1)
Quarter: 2015Q2

REPORT INFORMATION
  Report Type: Spontaneous
  Country: US (occurrence: US)
  Receive Date: 20150508
  Receipt Date: 20150508
  Transmission Date: 20150821
  Serious: No
  Sender: FDA-Public Use
  Company Number: US-GLAXOSMITHKLINE-US2015GSK061017

PATIENT
  Sex: Female

DRUGS (1)
  1. PROMACTA [Suspect]
     Active Substance: ELTROMBOPAG OLAMINE
     Indication: PLATELET COUNT DECREASED
     Dosage: 50 MG, U
     Route: 065
     Dates: start: 20150415

REACTIONS (5)
  - Weight increased [Unknown]
  - Hot flush [Unknown]
  - Night sweats [Unknown]
  - Increased appetite [Unknown]
  - Insomnia [Unknown]
